FAERS Safety Report 19395244 (Version 2)
Quarter: 2021Q2

REPORT INFORMATION
  Report Type: Report from Study
  Country: None (occurrence: US)
  Receive Date: 20210609
  Receipt Date: 20210618
  Transmission Date: 20210717
  Serious: No
  Sender: FDA-Public Use
  Company Number: US-ABBVIE-21K-163-3904332-00

PATIENT
  Age: 29 Year
  Sex: Female

DRUGS (1)
  1. ORILISSA [Suspect]
     Active Substance: ELAGOLIX SODIUM
     Indication: PRODUCT USED FOR UNKNOWN INDICATION
     Route: 048
     Dates: start: 20210429

REACTIONS (8)
  - Endometriosis [Recovering/Resolving]
  - Muscle spasms [Recovering/Resolving]
  - Blood cholesterol increased [Not Recovered/Not Resolved]
  - Sleep disorder [Not Recovered/Not Resolved]
  - Hepatic enzyme increased [Not Recovered/Not Resolved]
  - Dizziness [Not Recovered/Not Resolved]
  - Fatigue [Not Recovered/Not Resolved]
  - Hot flush [Not Recovered/Not Resolved]

NARRATIVE: CASE EVENT DATE: 2021
